FAERS Safety Report 9763374 (Version 1)
Quarter: 2013Q4

REPORT INFORMATION
  Report Type: Spontaneous
  Country: US (occurrence: US)
  Receive Date: 20131216
  Receipt Date: 20131216
  Transmission Date: 20140711
  Serious: No
  Sender: FDA-Public Use
  Company Number: US-BIOGENIDEC-2013BI107010

PATIENT
  Age: 66 Year
  Sex: Female

DRUGS (14)
  1. TECFIDERA [Suspect]
     Indication: MULTIPLE SCLEROSIS
     Route: 048
     Dates: start: 20131017
  2. AMITRIPTYLINE HCL [Concomitant]
  3. ASPIRIN [Concomitant]
  4. FLOMAX [Concomitant]
  5. FLOMAX [Concomitant]
  6. GABAPENTIN [Concomitant]
  7. LISINOPRIL [Concomitant]
  8. METFORMIN HCL [Concomitant]
  9. CONVALLARIA MAJALIS\CRATAEGUS LAEVIGATA LEAF\PROXYPHYLLINE [Concomitant]
  10. PRAVACHOL [Concomitant]
  11. VESICARE [Concomitant]
  12. VITAMIN D3 [Concomitant]
  13. ZANAFLEX [Concomitant]
  14. ZOLOFT [Concomitant]

REACTIONS (1)
  - Diarrhoea [Unknown]
